FAERS Safety Report 4591959-0 (Version None)
Quarter: 2005Q1

REPORT INFORMATION
  Report Type: 
  Country: None (occurrence: None)
  Receive Date: 20050222
  Receipt Date: 20050210
  Transmission Date: 20050727
  Serious: Yes (Hospitalization)
  Sender: FDA-Public Use
  Company Number: 200510603BCC

PATIENT
  Age: 60 Year
  Sex: Male
  Weight: 108.8633 kg

DRUGS (6)
  1. ASPIRIN [Suspect]
     Indication: THROMBOSIS PROPHYLAXIS
     Dosage: 325-650 MG, IRR, ORAL
     Route: 048
  2. ZOCOR [Concomitant]
  3. LISINOPRIL [Concomitant]
  4. TIZANIDINE [Concomitant]
  5. LORTAB [Concomitant]
  6. HYDROCHLOROTHIAZIDE [Concomitant]

REACTIONS (2)
  - CARDIAC DISORDER [None]
  - CHEST PAIN [None]
